FAERS Safety Report 10035295 (Version 1)
Quarter: 2014Q1

REPORT INFORMATION
  Report Type: Spontaneous
  Country: US (occurrence: None)
  Receive Date: 20140306
  Receipt Date: 20140306
  Transmission Date: 20141002
  Serious: Yes (Other)
  Sender: FDA-Public Use
  Company Number: 163-21880-13062519

PATIENT
  Age: 64 Year
  Sex: Male

DRUGS (7)
  1. REVLIMID (LENALIDOMIDE) (25 MILLIGRAM, CAPSULES) [Suspect]
     Indication: PLASMA CELL MYELOMA
     Dosage: 25 MG, 21 IN 28 D, PO
     Route: 048
     Dates: start: 20130402, end: 201303
  2. ANTIBIOTICS [Suspect]
     Indication: COUGH
  3. DEXAMETHASONE [Concomitant]
  4. MULTIVITAMINS [Concomitant]
  5. FOLIC ACID) [Concomitant]
  6. LISINOPRIL [Concomitant]
  7. ASPIRINE (ACETYLSALICYLIC ACID) [Concomitant]

REACTIONS (2)
  - Palpitations [None]
  - Cough [None]
